FAERS Safety Report 25422456 (Version 1)
Quarter: 2025Q2

REPORT INFORMATION
  Report Type: Report from Study
  Country: ES (occurrence: ES)
  Receive Date: 20250611
  Receipt Date: 20250611
  Transmission Date: 20250716
  Serious: Yes (Other)
  Sender: MYLAN
  Company Number: ES-MYLANLABS-2025M1049033

PATIENT
  Sex: Male

DRUGS (8)
  1. ABIRATERONE [Suspect]
     Active Substance: ABIRATERONE
     Indication: Hormone-dependent prostate cancer
  2. ABIRATERONE [Suspect]
     Active Substance: ABIRATERONE
     Route: 065
  3. ABIRATERONE [Suspect]
     Active Substance: ABIRATERONE
     Route: 065
  4. ABIRATERONE [Suspect]
     Active Substance: ABIRATERONE
  5. DOCETAXEL [Suspect]
     Active Substance: DOCETAXEL
     Indication: Hormone-dependent prostate cancer
  6. DOCETAXEL [Suspect]
     Active Substance: DOCETAXEL
     Route: 065
  7. DOCETAXEL [Suspect]
     Active Substance: DOCETAXEL
     Route: 065
  8. DOCETAXEL [Suspect]
     Active Substance: DOCETAXEL

REACTIONS (2)
  - Atrial fibrillation [Unknown]
  - Off label use [Unknown]
